FAERS Safety Report 8379671-3 (Version None)
Quarter: 2012Q2

REPORT INFORMATION
  Report Type: 
  Country: None (occurrence: None)
  Receive Date: 20120523
  Receipt Date: 20120510
  Transmission Date: 20120825
  Serious: No
  Sender: FDA-Public Use
  Company Number: US-ASTRAZENECA-2011SE66726

PATIENT
  Age: 60 Year
  Sex: Female

DRUGS (3)
  1. ZOMIG [Suspect]
     Indication: MIGRAINE
     Route: 048
  2. ZOMIG [Suspect]
     Dosage: TOOK FIRST AT 5PM THEN TOOK THE SECOND ON AT 7PM
     Route: 048
  3. CRESTOR [Suspect]

REACTIONS (3)
  - BLOOD CHOLESTEROL INCREASED [None]
  - ARTHRALGIA [None]
  - ROAD TRAFFIC ACCIDENT [None]
